FAERS Safety Report 9863502 (Version 1)
Quarter: 2014Q1

REPORT INFORMATION
  Report Type: Spontaneous
  Country: GR (occurrence: GR)
  Receive Date: 20140203
  Receipt Date: 20140203
  Transmission Date: 20141002
  Serious: Yes (Other)
  Sender: FDA-Public Use
  Company Number: GR-PFIZER INC-2014025496

PATIENT
  Age: 60 Year
  Sex: Female

DRUGS (3)
  1. HYDROCHLOROTHIAZIDE/QUINAPRIL HYDROCHLORIDE [Suspect]
     Indication: HYPERTENSION
     Dosage: UNK
  2. ROSUVASTATIN [Suspect]
     Indication: DYSLIPIDAEMIA
     Dosage: UNK
  3. ESOMEPRAZOLE [Concomitant]
     Indication: GASTRITIS
     Dosage: UNK

REACTIONS (3)
  - Hepatotoxicity [Recovered/Resolved]
  - Cholestasis [Recovered/Resolved]
  - Jaundice [Recovered/Resolved]
